FAERS Safety Report 8143310-7 (Version None)
Quarter: 2012Q1

REPORT INFORMATION
  Report Type: 
  Country: None (occurrence: None)
  Receive Date: 20120217
  Receipt Date: 20120214
  Transmission Date: 20120608
  Serious: Yes (Hospitalization)
  Sender: FDA-Public Use
  Company Number: BE-PFIZER INC-2012011781

PATIENT
  Age: 13 Year
  Sex: Female
  Weight: 40 kg

DRUGS (3)
  1. VALTRAN [Suspect]
     Indication: INTENTIONAL OVERDOSE
     Dosage: 50 GTT, SINGLE
     Route: 048
     Dates: start: 20120116
  2. ACETAMINOPHEN [Suspect]
     Indication: INTENTIONAL OVERDOSE
     Dosage: 4 G, SINGLE
     Route: 048
     Dates: start: 20120116
  3. XANAX [Suspect]
     Indication: INTENTIONAL OVERDOSE
     Dosage: 1.5 MG, SINGLE
     Route: 048
     Dates: start: 20120116

REACTIONS (5)
  - INTENTIONAL OVERDOSE [None]
  - SOMNOLENCE [None]
  - NAUSEA [None]
  - SUICIDE ATTEMPT [None]
  - APATHY [None]
